FAERS Safety Report 10801116 (Version 2)
Quarter: 2015Q1

REPORT INFORMATION
  Report Type: Spontaneous
  Country: US (occurrence: US)
  Receive Date: 20150216
  Receipt Date: 20150216
  Transmission Date: 20150721
  Serious: No
  Sender: FDA-Public Use
  Company Number: US-ALLERGAN-1423746US

PATIENT
  Age: 85 Year
  Sex: Female

DRUGS (6)
  1. LOSARTAN [Concomitant]
     Active Substance: LOSARTAN
     Indication: HYPERTENSION
     Dosage: 50 MG, QHS
     Route: 048
  2. REFRESH [Concomitant]
     Active Substance: UNSPECIFIED INGREDIENT
     Dosage: 2 GTT, 6 TIMES A DAY
     Route: 047
  3. RESTASIS [Suspect]
     Active Substance: CYCLOSPORINE
     Indication: OCULAR ROSACEA
     Dosage: 2 GTT, BID
     Route: 047
     Dates: start: 20141028
  4. AMLODIPINE [Concomitant]
     Active Substance: AMLODIPINE BESYLATE
     Dosage: 10 MG, QHS
     Route: 048
  5. LATANOPROST. [Concomitant]
     Active Substance: LATANOPROST
     Indication: INTRAOCULAR PRESSURE TEST
     Dosage: 2 GTT, QHS
     Route: 047
  6. RESTASIS [Suspect]
     Active Substance: CYCLOSPORINE
     Dosage: UNK
     Route: 047

REACTIONS (11)
  - Insomnia [Not Recovered/Not Resolved]
  - Off label use [Unknown]
  - Headache [Not Recovered/Not Resolved]
  - Asthenopia [Not Recovered/Not Resolved]
  - Vision blurred [Not Recovered/Not Resolved]
  - Visual acuity reduced [Not Recovered/Not Resolved]
  - Eye pain [Not Recovered/Not Resolved]
  - Foreign body sensation in eyes [Not Recovered/Not Resolved]
  - Corrective lens user [Not Recovered/Not Resolved]
  - Drug hypersensitivity [Unknown]
  - Ocular hyperaemia [Not Recovered/Not Resolved]
